FAERS Safety Report 8546199-7 (Version None)
Quarter: 2012Q3

REPORT INFORMATION
  Report Type: 
  Country: None (occurrence: None)
  Receive Date: 20120727
  Receipt Date: 20120724
  Transmission Date: 20120928
  Serious: Yes (Hospitalization, Other)
  Sender: FDA-Public Use
  Company Number: PHHY2012JP063667

PATIENT
  Age: 53 Year
  Sex: Male

DRUGS (4)
  1. PRAMIPEXOLE DIHYCHLORIDE [Suspect]
     Indication: PARKINSON'S DISEASE
     Dosage: 3 MG, DAILY
  2. CARBIDOPA + LEVODOPA [Suspect]
     Dosage: 300 MG, PER DAY
  3. CARBIDOPA + LEVODOPA [Suspect]
     Indication: PARKINSON'S DISEASE
     Dosage: 250 MG, DAILY
  4. DROXIDOPA [Suspect]
     Dosage: 200 MG, UNK

REACTIONS (17)
  - FLIGHT OF IDEAS [None]
  - DYSKINESIA [None]
  - JEALOUS DELUSION [None]
  - EUPHORIC MOOD [None]
  - DOPAMINE DYSREGULATION SYNDROME [None]
  - PRESSURE OF SPEECH [None]
  - HYPERSEXUALITY [None]
  - AGGRESSION [None]
  - DYSPHORIA [None]
  - IRRITABILITY [None]
  - DRUG ABUSE [None]
  - ENERGY INCREASED [None]
  - INSOMNIA [None]
  - AGITATION [None]
  - ANXIETY [None]
  - SOCIAL AVOIDANT BEHAVIOUR [None]
  - MANIA [None]
